FAERS Safety Report 9450091 (Version 1)
Quarter: 2013Q3

REPORT INFORMATION
  Report Type: Spontaneous
  Country: US (occurrence: US)
  Receive Date: 20130809
  Receipt Date: 20130809
  Transmission Date: 20140515
  Serious: Yes (Other)
  Sender: FDA-Public Use
  Company Number: US-AMGEN-USASP2013036564

PATIENT
  Age: 62 Year
  Sex: Female
  Weight: 59.3 kg

DRUGS (10)
  1. NPLATE [Suspect]
     Indication: IMMUNE THROMBOCYTOPENIC PURPURA
     Dosage: 600 MUG, QWK
     Route: 058
     Dates: start: 20130225, end: 20130305
  2. ELTROMBOPAG [Concomitant]
     Indication: IMMUNE THROMBOCYTOPENIC PURPURA
     Dosage: UNK
     Route: 048
     Dates: start: 20120918
  3. AVATROMBOPAG [Concomitant]
     Indication: THROMBOCYTOPENIA
     Dosage: UNK
     Route: 048
     Dates: start: 20120918
  4. ATENOLOL [Concomitant]
     Indication: HYPERTENSION
     Dosage: 50 MG, QD
     Route: 048
     Dates: start: 2000
  5. B COMPLEX                          /00212701/ [Concomitant]
     Indication: SUPPLEMENTATION THERAPY
     Dosage: 1 TAB, QD
     Route: 048
     Dates: start: 20081124
  6. AMINOCAPROIC ACID [Concomitant]
     Indication: HAEMORRHAGE
     Dosage: 500 MG, AS NECESSARY
     Route: 048
     Dates: start: 20130305
  7. BUTALBITAL, ACETAMINOPHEN + CAFFEINE [Concomitant]
     Indication: HEADACHE
     Dosage: 50/300/40 MG, AS NECESSARY
     Dates: start: 20111108
  8. CALCIUM 600 PLUS VITAMIN D [Concomitant]
     Indication: SUPPLEMENTATION THERAPY
     Dosage: UNK
     Route: 048
     Dates: start: 2009
  9. MULTIVITAMIN                       /00097801/ [Concomitant]
     Indication: SUPPLEMENTATION THERAPY
     Dosage: 1 TAB, QD
     Route: 048
     Dates: start: 2008
  10. IVIGLOB-EX [Concomitant]

REACTIONS (1)
  - Bone marrow reticulin fibrosis [Recovering/Resolving]
